FAERS Safety Report 8895749 (Version 2)
Quarter: 2013Q1

REPORT INFORMATION
  Report Type: Report from Study
  Country: US (occurrence: US)
  Receive Date: 20121108
  Receipt Date: 20130103
  Transmission Date: 20140127
  Serious: Yes (Hospitalization)
  Sender: FDA-Public Use
  Company Number: US-ROCHE-1149022

PATIENT
  Age: 57 Year
  Sex: Female
  Weight: 85.26 kg

DRUGS (21)
  1. TRASTUZUMAB [Suspect]
     Indication: BREAST CANCER
     Dosage: LOADING DOSE
     Route: 042
     Dates: start: 20121011
  2. TRASTUZUMAB [Suspect]
     Dosage: DATE OF LAST DOSE PRIOR TO SAE- 11/OCT/2012
     Route: 042
  3. DOCETAXEL [Suspect]
     Indication: BREAST CANCER
     Dosage: DATE OF LAST DOSE PRIOR TO SAE- 11/OCT/2012
     Route: 042
     Dates: start: 20121011
  4. CARBOPLATIN [Suspect]
     Indication: BREAST CANCER
     Dosage: DATE OF LAST DOSE PRIOR TO SAE- 11/OCT/2012
     Route: 042
     Dates: start: 20121011
  5. ASPIRIN [Concomitant]
  6. FISH OIL [Concomitant]
     Dosage: 1 CAPSULE
     Route: 065
  7. LANSOPRAZOLE [Concomitant]
  8. LIPITOR [Concomitant]
  9. LISINOPRIL [Concomitant]
  10. METFORMIN [Concomitant]
  11. NASONEX [Concomitant]
  12. SUMATRIPTAN SUCCINATE [Concomitant]
     Dosage: 25-50
     Route: 065
     Dates: start: 20121015, end: 20121016
  13. SYNTHROID [Concomitant]
  14. TRICOR [Concomitant]
  15. COMPAZINE SUPPOSITORIES [Concomitant]
     Route: 065
     Dates: start: 20121018
  16. ATIVAN [Concomitant]
     Route: 065
     Dates: start: 20121018
  17. INFED [Concomitant]
  18. ALOXI [Concomitant]
     Dosage: PRETREATMENT OF 21 DAYS
     Route: 065
     Dates: start: 20121011
  19. BENADRYL [Concomitant]
     Dosage: PRETREATMENT OF 21 DAYS
     Route: 065
     Dates: start: 20121011
  20. RANITIDINE HCL [Concomitant]
     Dosage: PRETREATMENT OF 21 DAYS
     Route: 065
     Dates: start: 20121011
  21. PERTUZUMAB [Suspect]
     Indication: BREAST CANCER
     Dosage: DATE OF LAST DOSE PRIOR TO SAE- 11/OCT/2012
     Route: 042
     Dates: start: 20121011

REACTIONS (3)
  - Hypokalaemia [Not Recovered/Not Resolved]
  - Blood creatinine increased [Not Recovered/Not Resolved]
  - Dehydration [Unknown]
